FAERS Safety Report 7806437-2 (Version None)
Quarter: 2011Q4

REPORT INFORMATION
  Report Type: 
  Country: None (occurrence: None)
  Receive Date: 20111011
  Receipt Date: 20111003
  Transmission Date: 20120403
  Serious: Yes (Congenital Anomaly)
  Sender: FDA-Public Use
  Company Number: FR-UCBSA-042645

PATIENT
  Sex: Male
  Weight: 4.78 kg

DRUGS (5)
  1. XYZAL [Suspect]
     Dosage: TOTAL DAILY DOSE : 5 MG
     Route: 064
     Dates: start: 20100820, end: 20110511
  2. SINGULAIR [Suspect]
     Dosage: 1 TABLET
     Route: 064
     Dates: start: 20100820, end: 20110511
  3. BRICANYL [Suspect]
     Route: 064
     Dates: start: 20100820, end: 20110511
  4. AMINOPHYLLINE [Suspect]
     Dosage: TOTAL DAILY DOSE : 300 MG
     Route: 064
     Dates: start: 20100820, end: 20110511
  5. FORADIL [Suspect]
     Route: 064
     Dates: start: 20100820, end: 20110511

REACTIONS (4)
  - EXOPHTHALMOS [None]
  - LARGE FOR DATES BABY [None]
  - CONGENITAL ANOMALY [None]
  - MATERNAL EXPOSURE DURING PREGNANCY [None]
